FAERS Safety Report 22376491 (Version 1)
Quarter: 2023Q2

REPORT INFORMATION
  Report Type: Other
  Country: IT (occurrence: None)
  Receive Date: 20230528
  Receipt Date: 20230528
  Transmission Date: 20230721
  Serious: Yes (Hospitalization)
  Sender: FDA-Public Use
  Company Number: IT-Square-000142

PATIENT
  Age: 16 Year
  Sex: Female

DRUGS (4)
  1. ACYCLOVIR [Suspect]
     Active Substance: ACYCLOVIR
     Indication: Encephalitis
     Dosage: 15 MG/KG 3 TIMES PER DAY
  2. DEXAMETHASONE [Suspect]
     Active Substance: DEXAMETHASONE
     Indication: Encephalitis
     Dosage: 0.4 MG/KG PER DAY
     Route: 042
  3. IMMUNOGLOBULIN [Concomitant]
     Indication: Encephalitis
     Dosage: 0.4 G/KG
     Route: 042
  4. DEXAMETHASONE [Suspect]
     Active Substance: DEXAMETHASONE
     Indication: Encephalitis
     Dosage: 0.25 MG/KG PER DAY
     Route: 042

REACTIONS (1)
  - Treatment failure [Unknown]
